FAERS Safety Report 16457705 (Version 3)
Quarter: 2019Q3

REPORT INFORMATION
  Report Type: Spontaneous
  Country: US (occurrence: US)
  Receive Date: 20190620
  Receipt Date: 20190731
  Transmission Date: 20191004
  Serious: Yes (Hospitalization)
  Sender: FDA-Public Use
  Company Number: US-PFIZER INC-2019258893

PATIENT
  Age: 80 Year
  Sex: Female
  Weight: 86.17 kg

DRUGS (5)
  1. CENTRUM SILVER +50 [Concomitant]
     Dosage: UNK
  2. NIFEDIPINE. [Suspect]
     Active Substance: NIFEDIPINE
     Indication: HYPERTENSION
     Dosage: UNK
  3. FISH OIL [Concomitant]
     Active Substance: FISH OIL
     Dosage: UNK
  4. PROCARDIA [Concomitant]
     Active Substance: NIFEDIPINE
     Dosage: UNK
  5. METFORMIN [Concomitant]
     Active Substance: METFORMIN HYDROCHLORIDE
     Dosage: 500 MG, UNK

REACTIONS (6)
  - Drug hypersensitivity [Unknown]
  - Malaise [Unknown]
  - Dizziness [Unknown]
  - Swelling face [Unknown]
  - Cardiac disorder [Unknown]
  - Nausea [Unknown]
